FAERS Safety Report 7184030-5 (Version None)
Quarter: 2010Q4

REPORT INFORMATION
  Report Type: 
  Country: None (occurrence: None)
  Receive Date: 20101222
  Receipt Date: 20101208
  Transmission Date: 20110411
  Serious: Yes (Hospitalization)
  Sender: FDA-Public Use
  Company Number: PHHY2010BR83699

PATIENT
  Sex: Male

DRUGS (3)
  1. DIOVAN AMLO FIX [Suspect]
     Dosage: 160/5 MG, UNK
  2. CONCOR [Concomitant]
  3. SUSTRATE [Concomitant]
     Dosage: ONE TABLET, UNK

REACTIONS (7)
  - ABDOMINAL DISCOMFORT [None]
  - ASTHENIA [None]
  - BLOOD PRESSURE DECREASED [None]
  - CARDIAC DISORDER [None]
  - DEHYDRATION [None]
  - DIZZINESS [None]
  - PNEUMONIA [None]
